FAERS Safety Report 24980006 (Version 1)
Quarter: 2025Q1

REPORT INFORMATION
  Report Type: Spontaneous
  Country: US (occurrence: US)
  Receive Date: 20250218
  Receipt Date: 20250218
  Transmission Date: 20250409
  Serious: Yes (Other)
  Sender: ROCHE
  Company Number: US-ROCHE-10000209152

PATIENT
  Age: 47 Year
  Sex: Male

DRUGS (15)
  1. RITUXIMAB [Suspect]
     Active Substance: RITUXIMAB
     Indication: Haemophagocytic lymphohistiocytosis
     Route: 065
  2. DEXAMETHASONE [Suspect]
     Active Substance: DEXAMETHASONE
     Indication: Haemophagocytic lymphohistiocytosis
     Route: 065
  3. ETOPOSIDE [Suspect]
     Active Substance: ETOPOSIDE
     Indication: Haemophagocytic lymphohistiocytosis
     Route: 065
  4. METHOTREXATE [Concomitant]
     Active Substance: METHOTREXATE
  5. ADALIMUMAB [Concomitant]
     Active Substance: ADALIMUMAB
  6. RIFAMPIN [Concomitant]
     Active Substance: RIFAMPIN
  7. CEFEPIME [Concomitant]
     Active Substance: CEFEPIME HYDROCHLORIDE
  8. VANCOMYCIN [Concomitant]
     Active Substance: VANCOMYCIN
  9. MEROPENEM [Concomitant]
     Active Substance: MEROPENEM
  10. AMPHOTERICIN B [Concomitant]
     Active Substance: AMPHOTERICIN B
  11. VALACYCLOVIR [Concomitant]
     Active Substance: VALACYCLOVIR HYDROCHLORIDE
  12. ITRACONAZOLE [Concomitant]
     Active Substance: ITRACONAZOLE
  13. AMPHOTERICIN B [Concomitant]
     Active Substance: AMPHOTERICIN B
  14. DAPTOMYCIN [Concomitant]
     Active Substance: DAPTOMYCIN
     Route: 040
  15. VORICONAZOLE [Concomitant]
     Active Substance: VORICONAZOLE

REACTIONS (1)
  - Pneumonia klebsiella [Unknown]
